FAERS Safety Report 24835245 (Version 1)
Quarter: 2025Q1

REPORT INFORMATION
  Report Type: Other
  Country: IL (occurrence: IL)
  Receive Date: 20250113
  Receipt Date: 20250113
  Transmission Date: 20250409
  Serious: Yes (Other)
  Sender: CREEKWOOD PHARMACEUTICALS LLC
  Company Number: IL-Creekwood Pharmaceuticals LLC-2168941

PATIENT
  Age: 15 Year
  Sex: Female

DRUGS (1)
  1. HYDROXYCHLOROQUINE SULFATE [Suspect]
     Active Substance: HYDROXYCHLOROQUINE SULFATE
     Indication: Systemic lupus erythematosus

REACTIONS (5)
  - Chronic inflammatory demyelinating polyradiculoneuropathy [Recovering/Resolving]
  - Myopathy [Recovering/Resolving]
  - CSF protein increased [Not Recovered/Not Resolved]
  - Neuropathy peripheral [Recovering/Resolving]
  - Toxicity to various agents [Recovering/Resolving]
